FAERS Safety Report 16491645 (Version 1)
Quarter: 2019Q2

REPORT INFORMATION
  Report Type: Spontaneous
  Country: AU (occurrence: AU)
  Receive Date: 20190628
  Receipt Date: 20190628
  Transmission Date: 20190711
  Serious: Yes (Hospitalization)
  Sender: FDA-Public Use
  Company Number: AU-AMREGENT-20191313

PATIENT

DRUGS (1)
  1. FERINJECT [Suspect]
     Active Substance: FERRIC CARBOXYMALTOSE
     Dosage: UNKNOWN
     Route: 041
     Dates: start: 20190611

REACTIONS (4)
  - Electrocardiogram abnormal [Unknown]
  - Chest pain [Unknown]
  - Abdominal pain upper [Unknown]
  - Urticaria [Unknown]

NARRATIVE: CASE EVENT DATE: 20190611
